FAERS Safety Report 6356240-8 (Version None)
Quarter: 2009Q3

REPORT INFORMATION
  Report Type: 
  Country: None (occurrence: None)
  Receive Date: 20090914
  Receipt Date: 20090914
  Transmission Date: 20100115
  Serious: Yes (Disabling)
  Sender: FDA-Public Use
  Company Number: None

PATIENT
  Age: 63 Year
  Sex: Male
  Weight: 108.8633 kg

DRUGS (1)
  1. ZEMURON [Suspect]
     Indication: NEUROMUSCULAR BLOCKADE
     Dosage: 100 MG ONCE IV BOLUS
     Route: 040
     Dates: start: 20090825, end: 20090825

REACTIONS (3)
  - AIRWAY COMPLICATION OF ANAESTHESIA [None]
  - PROCEDURAL HYPOTENSION [None]
  - RASH [None]
